FAERS Safety Report 15056695 (Version 1)
Quarter: 2018Q2

REPORT INFORMATION
  Report Type: Spontaneous
  Country: US (occurrence: US)
  Receive Date: 20180604
  Receipt Date: 20180604
  Transmission Date: 20180711
  Serious: Yes (Hospitalization)
  Sender: FDA-Public Use
  Company Number: None

PATIENT
  Age: 43 Year
  Sex: Female

DRUGS (10)
  1. RANITIDINE. [Concomitant]
     Active Substance: RANITIDINE
  2. LOESTRIN NOS [Concomitant]
     Active Substance: ETHINYL ESTRADIOL\NORETHINDRONE ACETATE
  3. FEXOFENADINE [Concomitant]
     Active Substance: FEXOFENADINE\FEXOFENADINE HYDROCHLORIDE
  4. TOVIAZ [Concomitant]
     Active Substance: FESOTERODINE FUMARATE
  5. SERTRALINE [Concomitant]
     Active Substance: SERTRALINE HYDROCHLORIDE
  6. HUMIRA [Suspect]
     Active Substance: ADALIMUMAB
     Indication: CROHN^S DISEASE
     Dosage: ?          OTHER FREQUENCY:WEEKLY;?
     Route: 058
     Dates: start: 20131125
  7. FLONASE [Concomitant]
     Active Substance: FLUTICASONE PROPIONATE
  8. LYRICA [Concomitant]
     Active Substance: PREGABALIN
  9. OMEPRAZOLE. [Concomitant]
     Active Substance: OMEPRAZOLE
  10. CALCIUM + D [Concomitant]
     Active Substance: CALCIUM\VITAMIN D

REACTIONS (3)
  - Diarrhoea [None]
  - Gallbladder operation [None]
  - Abdominal pain [None]

NARRATIVE: CASE EVENT DATE: 20180522
